FAERS Safety Report 8154266-5 (Version None)
Quarter: 2012Q1

REPORT INFORMATION
  Report Type: 
  Country: None (occurrence: None)
  Receive Date: 20120209
  Receipt Date: 20120209
  Transmission Date: 20120608
  Serious: Yes (Other)
  Sender: FDA-Public Use
  Company Number: None

PATIENT
  Sex: Male

DRUGS (1)
  1. LADY SPEED STICK 24/7 FRESH FUSION, STICK [Suspect]
     Dosage: THREE STROKES/ONCE/TOPICAL
     Route: 061
     Dates: start: 20111224, end: 20111224

REACTIONS (2)
  - DERMATITIS ALLERGIC [None]
  - ILL-DEFINED DISORDER [None]
